FAERS Safety Report 19464654 (Version 3)
Quarter: 2023Q1

REPORT INFORMATION
  Report Type: Report from Study
  Country: CA (occurrence: CA)
  Receive Date: 20210626
  Receipt Date: 20230215
  Transmission Date: 20230417
  Serious: Yes (Other)
  Sender: FDA-Public Use
  Company Number: CA-NOVARTISPH-NVSC2021CA139165

PATIENT
  Age: 80 Year
  Sex: Male

DRUGS (17)
  1. MONTELUKAST [Suspect]
     Active Substance: MONTELUKAST SODIUM
     Indication: Chronic spontaneous urticaria
     Dosage: 10 MG, QD
     Route: 048
     Dates: start: 20210603
  2. MONTELUKAST [Suspect]
     Active Substance: MONTELUKAST SODIUM
     Dosage: 10 MG, QD
     Route: 048
  3. HYDROCORTISONE [Suspect]
     Active Substance: HYDROCORTISONE
     Indication: Chronic spontaneous urticaria
     Dosage: UNK UNK, BID,1 X 1%MCG (UG),
     Route: 061
     Dates: start: 20201130, end: 20201214
  4. HYDROCORTISONE [Suspect]
     Active Substance: HYDROCORTISONE
     Dosage: UNK, BID
     Route: 061
  5. CLOBETASOL [Suspect]
     Active Substance: CLOBETASOL
     Indication: Chronic spontaneous urticaria
     Dosage: UNK UNK, PRN,1 X 0.05%MCG (UG)
     Route: 061
     Dates: start: 20200805
  6. CLOBETASOL [Suspect]
     Active Substance: CLOBETASOL
     Dosage: UNK
     Route: 061
  7. CEFUROXIME [Suspect]
     Active Substance: CEFUROXIME
     Indication: Product used for unknown indication
     Dosage: UNK
     Route: 065
  8. PREDNISONE [Concomitant]
     Active Substance: PREDNISONE
     Indication: Product used for unknown indication
     Dosage: UNK,  1 OTHER
     Route: 048
     Dates: start: 20201110
  9. PREDNISONE [Concomitant]
     Active Substance: PREDNISONE
     Dosage: UNK
     Route: 048
  10. REACTINE [Concomitant]
     Indication: Chronic spontaneous urticaria
     Dosage: 1 DOSAGE FORM, BID
     Route: 048
     Dates: start: 20210422
  11. ATARAX [Concomitant]
     Active Substance: HYDROXYZINE HYDROCHLORIDE
     Indication: Chronic spontaneous urticaria
     Dosage: 2 DOSAGE FORM, QD
     Route: 048
     Dates: start: 20210414
  12. MENTHOL [Concomitant]
     Active Substance: MENTHOL
     Indication: Product used for unknown indication
     Dosage: UNK
     Route: 065
  13. MENTHOL [Concomitant]
     Active Substance: MENTHOL
     Dosage: UNK
     Route: 065
  14. VIADERM-KC [Concomitant]
     Indication: Chronic spontaneous urticaria
     Dosage: UNK, TID, 1 (STRENGTH: 2.5 + 1 + 0.25 UNITS)
     Route: 061
     Dates: start: 20210603
  15. CETIRIZINE HYDROCHLORIDE [Concomitant]
     Active Substance: CETIRIZINE HYDROCHLORIDE
     Indication: Chronic spontaneous urticaria
     Dosage: 1 DOSAGE FORM, BID
     Route: 048
  16. GRAMICIDIN [Concomitant]
     Active Substance: GRAMICIDIN
     Indication: Chronic spontaneous urticaria
     Dosage: UNK, TID
     Route: 061
  17. HYDROXYZINE [Concomitant]
     Active Substance: HYDROXYZINE HYDROCHLORIDE
     Indication: Chronic spontaneous urticaria
     Dosage: 2 DOSAGE FORM, QD
     Route: 048

REACTIONS (2)
  - Hypersensitivity [Unknown]
  - Off label use [Unknown]
